FAERS Safety Report 9451105 (Version 2)
Quarter: 2013Q3

REPORT INFORMATION
  Report Type: Report from Study
  Country: US (occurrence: US)
  Receive Date: 20130809
  Receipt Date: 20130905
  Transmission Date: 20140515
  Serious: Yes (Other)
  Sender: FDA-Public Use
  Company Number: US-ABBOTT-13P-163-1128786-00

PATIENT
  Sex: Female

DRUGS (7)
  1. LUPRON DEPOT [Suspect]
     Indication: ENDOMETRIOSIS
     Dates: start: 2006, end: 2008
  2. LUPRON DEPOT [Suspect]
     Dates: start: 20130821
  3. VICODIN [Concomitant]
     Indication: PAIN
     Dosage: 5 - 7.5 MG 1 PRN
  4. XANAX [Concomitant]
     Indication: INSOMNIA
  5. FISH OIL [Concomitant]
     Indication: PRODUCT USED FOR UNKNOWN INDICATION
  6. PRENATAL VITAMINS [Concomitant]
     Indication: PRODUCT USED FOR UNKNOWN INDICATION
  7. BIOTIN [Concomitant]
     Indication: PRODUCT USED FOR UNKNOWN INDICATION

REACTIONS (4)
  - Cyst [Not Recovered/Not Resolved]
  - Endometriosis [Unknown]
  - Menorrhagia [Not Recovered/Not Resolved]
  - Endometriosis [Not Recovered/Not Resolved]
